FAERS Safety Report 25908737 (Version 2)
Quarter: 2025Q4

REPORT INFORMATION
  Report Type: Spontaneous
  Country: US (occurrence: US)
  Receive Date: 20251011
  Receipt Date: 20251122
  Transmission Date: 20260117
  Serious: No
  Sender: AMGEN
  Company Number: US-AMGEN-USASP2025199114

PATIENT
  Age: 70 Year

DRUGS (2)
  1. REPATHA [Suspect]
     Active Substance: EVOLOCUMAB
     Indication: Blood cholesterol increased
     Dosage: 140 MILLIGRAM, QD
     Route: 065
     Dates: start: 20251005
  2. REPATHA [Suspect]
     Active Substance: EVOLOCUMAB
     Indication: Pain in extremity

REACTIONS (5)
  - Injection site injury [Unknown]
  - Product preparation error [Unknown]
  - Product communication issue [Unknown]
  - Fear of injection [Recovering/Resolving]
  - Drug dose omission by device [Unknown]

NARRATIVE: CASE EVENT DATE: 20251005
